FAERS Safety Report 25438903 (Version 1)
Quarter: 2025Q2

REPORT INFORMATION
  Report Type: Spontaneous
  Country: TR (occurrence: TR)
  Receive Date: 20250616
  Receipt Date: 20250616
  Transmission Date: 20250717
  Serious: Yes (Hospitalization, Other)
  Sender: MACLEODS
  Company Number: TR-MACLEODS PHARMA-MAC2020028730

PATIENT

DRUGS (1)
  1. PREGABALIN [Suspect]
     Active Substance: PREGABALIN
     Indication: Substance use
     Route: 045

REACTIONS (6)
  - Myoclonic epilepsy [Recovered/Resolved]
  - Intentional overdose [Unknown]
  - Loss of consciousness [Unknown]
  - Lethargy [Unknown]
  - Dizziness [Unknown]
  - Intentional product misuse [Unknown]
